FAERS Safety Report 5702253-6 (Version None)
Quarter: 2008Q2

REPORT INFORMATION
  Report Type: 
  Country: None (occurrence: None)
  Receive Date: 20080411
  Receipt Date: 20080215
  Transmission Date: 20081010
  Serious: No
  Sender: FDA-Public Use
  Company Number: US-ABBOTT-08P-163-0438740-00

PATIENT
  Age: 32 Year
  Sex: Male
  Weight: 96 kg

DRUGS (4)
  1. DEPAKOTE [Suspect]
     Indication: EPILEPSY
  2. DEPAKOTE [Suspect]
     Indication: PETIT MAL EPILEPSY
  3. DEPAKENE [Suspect]
     Indication: EPILEPSY
  4. DEPAKENE [Suspect]
     Indication: PETIT MAL EPILEPSY

REACTIONS (2)
  - MEDICATION ERROR [None]
  - RASH [None]
